FAERS Safety Report 19884560 (Version 1)
Quarter: 2021Q3

REPORT INFORMATION
  Report Type: Spontaneous
  Country: US (occurrence: US)
  Receive Date: 20210924
  Receipt Date: 20210924
  Transmission Date: 20211014
  Serious: Yes (Other)
  Sender: FDA-Public Use
  Company Number: None

PATIENT
  Age: 40 Year
  Sex: Female

DRUGS (1)
  1. REGEN?COV [Suspect]
     Active Substance: CASIRIVIMAB\IMDEVIMAB

REACTIONS (5)
  - Hyperhidrosis [None]
  - Memory impairment [None]
  - Dizziness [None]
  - Pallor [None]
  - Speech disorder [None]

NARRATIVE: CASE EVENT DATE: 20210905
